FAERS Safety Report 6106762-X (Version None)
Quarter: 2009Q1

REPORT INFORMATION
  Report Type: 
  Country: None (occurrence: None)
  Receive Date: 20090307
  Receipt Date: 20090224
  Transmission Date: 20090719
  Serious: Yes (Other)
  Sender: FDA-Public Use
  Company Number: US-JNJCH-2009005413

PATIENT
  Age: 11 Year
  Sex: Male
  Weight: 34 kg

DRUGS (1)
  1. CHILDREN'S SUDAFED NASAL DECONGESTANT [Suspect]
     Indication: NASAL CONGESTION
     Dosage: TEXT:TOTAL OF 4 DOSES EVERY 8 HRS
     Route: 048
     Dates: start: 20090223, end: 20090224

REACTIONS (1)
  - HYPOAESTHESIA [None]
